FAERS Safety Report 24436497 (Version 1)
Quarter: 2024Q4

REPORT INFORMATION
  Report Type: Spontaneous
  Country: US (occurrence: US)
  Receive Date: 20241015
  Receipt Date: 20241015
  Transmission Date: 20250114
  Serious: No
  Sender: DR REDDYS
  Company Number: US-DRL-USA-SPO/USA/24/0014826

PATIENT
  Sex: Female

DRUGS (1)
  1. MEMBERS MARK MUCUS RELIEF DM [Suspect]
     Active Substance: DEXTROMETHORPHAN HYDROBROMIDE\GUAIFENESIN
     Indication: Product used for unknown indication
     Dosage: 1200MG/60MG?EXTEND RELEASE
     Route: 065

REACTIONS (2)
  - Malaise [Unknown]
  - Extra dose administered [Unknown]

NARRATIVE: CASE EVENT DATE: 20241002
